FAERS Safety Report 6971675-8 (Version None)
Quarter: 2010Q3

REPORT INFORMATION
  Report Type: 
  Country: None (occurrence: None)
  Receive Date: 20100908
  Receipt Date: 20100827
  Transmission Date: 20110219
  Serious: No
  Sender: FDA-Public Use
  Company Number: US-B.I. PHARMACEUTICALS,INC./RIDGEFIELD-2010-BP-09793BP

PATIENT
  Sex: Female

DRUGS (6)
  1. SPIRIVA [Suspect]
     Indication: DYSPNOEA
     Dosage: 18 MCG
     Route: 055
     Dates: start: 20080101, end: 20100801
  2. OXYGEN [Concomitant]
     Indication: DYSPNOEA
  3. TRIAMTERENE HCT [Concomitant]
     Indication: JOINT SWELLING
  4. VITAMINS [Concomitant]
     Indication: PROPHYLAXIS
  5. ASPIRIN [Concomitant]
     Indication: PROPHYLAXIS
  6. POTASSIUM [Concomitant]
     Indication: PROPHYLAXIS

REACTIONS (2)
  - BLISTER [None]
  - RASH [None]
